FAERS Safety Report 7371054-8 (Version None)
Quarter: 2011Q1

REPORT INFORMATION
  Report Type: 
  Country: None (occurrence: None)
  Receive Date: 20110324
  Receipt Date: 20110318
  Transmission Date: 20110831
  Serious: Yes (Life-Threatening, Other)
  Sender: FDA-Public Use
  Company Number: JP-BAYER-200810655BYL

PATIENT
  Sex: Male
  Weight: 52.5 kg

DRUGS (8)
  1. PREDNISOLONE [Concomitant]
     Indication: RENAL CELL CARCINOMA STAGE IV
     Dosage: DAILY DOSE 8 MG
     Route: 048
     Dates: start: 20080318, end: 20080408
  2. NEXAVAR [Suspect]
     Dosage: DAILY DOSE 400 MG
     Route: 048
     Dates: start: 20080513, end: 20080619
  3. NEXAVAR [Suspect]
     Indication: RENAL CELL CARCINOMA STAGE IV
     Dosage: 400 MG, BID
     Route: 048
     Dates: start: 20080318, end: 20080408
  4. NIPOLAZIN [Concomitant]
     Indication: ONCOLOGIC COMPLICATION
     Route: 048
     Dates: start: 20080318, end: 20080408
  5. BLOPRESS [Concomitant]
     Indication: HYPERTENSION
     Dosage: UNK UNK, UNK
     Route: 048
  6. MEVALOTIN [Concomitant]
     Indication: ONCOLOGIC COMPLICATION
     Dosage: DAILY DOSE 10 MG
     Route: 048
     Dates: start: 20080318, end: 20080408
  7. LENDORMIN [Concomitant]
     Indication: ONCOLOGIC COMPLICATION
     Route: 048
     Dates: start: 20080318, end: 20080408
  8. ALLELOCK [Concomitant]
     Indication: ONCOLOGIC COMPLICATION
     Dosage: DAILY DOSE 10 MG
     Route: 048
     Dates: start: 20080318, end: 20080408

REACTIONS (3)
  - PALMAR-PLANTAR ERYTHRODYSAESTHESIA SYNDROME [None]
  - HYPERTENSION [None]
  - AORTIC DISSECTION [None]
